FAERS Safety Report 12565711 (Version 1)
Quarter: 2016Q3

REPORT INFORMATION
  Report Type: Spontaneous
  Country: US (occurrence: US)
  Receive Date: 20160718
  Receipt Date: 20160718
  Transmission Date: 20161109
  Serious: No
  Sender: FDA-Public Use
  Company Number: US-BAUSCH-BL-2016-009501

PATIENT
  Age: 51 Year
  Sex: Female
  Weight: 68.1 kg

DRUGS (3)
  1. SYSTANE ULTRA LUBRICANT DROPS [Concomitant]
     Indication: DRY EYE
     Route: 047
     Dates: start: 20160403, end: 201604
  2. GENTEAL MODERATE TO SEVERE EYE GEL [Concomitant]
     Indication: PRODUCT USED FOR UNKNOWN INDICATION
     Route: 047
  3. LACRISERT [Suspect]
     Active Substance: HYDROXYPROPYL CELLULOSE
     Indication: DRY EYE
     Dosage: INSERTED INTO EACH EYE ONCE EVERY MORNING
     Route: 047
     Dates: start: 20160403, end: 201604

REACTIONS (8)
  - Vision blurred [Recovered/Resolved]
  - Ocular discomfort [Recovered/Resolved]
  - Foreign body sensation in eyes [Recovered/Resolved]
  - Tenderness [Recovered/Resolved]
  - Eye irritation [Recovered/Resolved]
  - Eye pain [Recovered/Resolved]
  - Ocular hyperaemia [Recovered/Resolved]
  - Eyelid oedema [Recovered/Resolved]

NARRATIVE: CASE EVENT DATE: 201604
